FAERS Safety Report 10889582 (Version 1)
Quarter: 2015Q1

REPORT INFORMATION
  Report Type: Spontaneous
  Country: US (occurrence: US)
  Receive Date: 20150305
  Receipt Date: 20150305
  Transmission Date: 20150721
  Serious: No
  Sender: FDA-Public Use
  Company Number: US-GLAXOSMITHKLINE-US2015GSK029658

PATIENT
  Sex: Male
  Weight: 99.77 kg

DRUGS (11)
  1. VOTRIENT [Suspect]
     Active Substance: PAZOPANIB HYDROCHLORIDE
     Indication: RENAL CANCER METASTATIC
     Dosage: 800 MG, QD
     Dates: start: 201502
  2. DRONABINOL. [Concomitant]
     Active Substance: DRONABINOL
  3. DOCUSATE [Concomitant]
     Active Substance: DOCUSATE
  4. CARISOPRODOL. [Concomitant]
     Active Substance: CARISOPRODOL
  5. VIAGRA [Concomitant]
     Active Substance: SILDENAFIL CITRATE
  6. KRISTALOSE [Concomitant]
     Active Substance: LACTULOSE
  7. IRON [Concomitant]
     Active Substance: IRON
  8. FERROUS SULFATE [Concomitant]
     Active Substance: FERROUS SULFATE\FERROUS SULFATE, DRIED
  9. ONDANSETRON [Concomitant]
     Active Substance: ONDANSETRON
  10. OXYCODONE [Concomitant]
     Active Substance: OXYCODONE
  11. IBUPROFEN. [Concomitant]
     Active Substance: IBUPROFEN

REACTIONS (3)
  - Back pain [Unknown]
  - Rash pruritic [Unknown]
  - Joint stiffness [Unknown]
